FAERS Safety Report 4646835-1 (Version None)
Quarter: 2005Q2

REPORT INFORMATION
  Report Type: 
  Country: None (occurrence: None)
  Receive Date: 20050427
  Receipt Date: 20050311
  Transmission Date: 20051028
  Serious: Yes (Hospitalization)
  Sender: FDA-Public Use
  Company Number: GB-ABBOTT-05P-167-0294199-00

PATIENT
  Sex: Female
  Weight: 54 kg

DRUGS (6)
  1. HUMIRA [Suspect]
     Indication: RHEUMATOID ARTHRITIS
     Dates: start: 20031022
  2. PENICILLAMINE [Concomitant]
     Indication: DRUG USE FOR UNKNOWN INDICATION
  3. BRUFEN [Concomitant]
     Indication: DRUG USE FOR UNKNOWN INDICATION
  4. PARAMOL-118 [Concomitant]
     Indication: DRUG USE FOR UNKNOWN INDICATION
  5. SALBUTAMOL [Concomitant]
     Indication: DRUG USE FOR UNKNOWN INDICATION
  6. BECLOTIDE [Concomitant]
     Indication: DRUG USE FOR UNKNOWN INDICATION

REACTIONS (3)
  - CELLULITIS [None]
  - IMPETIGO [None]
  - SKIN INFECTION [None]
